FAERS Safety Report 21781093 (Version 1)
Quarter: 2022Q4

REPORT INFORMATION
  Report Type: Spontaneous
  Country: ES (occurrence: ES)
  Receive Date: 20221227
  Receipt Date: 20221227
  Transmission Date: 20230113
  Serious: Yes (Other)
  Sender: FDA-Public Use
  Company Number: ES-BAYER-2022P008221

PATIENT
  Age: 73 Year
  Sex: Female

DRUGS (2)
  1. XARELTO [Suspect]
     Active Substance: RIVAROXABAN
     Indication: Pulmonary thrombosis
     Dosage: 20 MG
     Route: 048
     Dates: start: 2021
  2. XARELTO [Suspect]
     Active Substance: RIVAROXABAN
     Indication: Pulmonary thrombosis
     Dosage: UNK
     Route: 048

REACTIONS (5)
  - Amyotrophic lateral sclerosis [Unknown]
  - Embolism [Unknown]
  - Slow speech [Unknown]
  - Speech disorder [Unknown]
  - Dysphagia [Not Recovered/Not Resolved]
